FAERS Safety Report 9221519 (Version 1)
Quarter: 2013Q2

REPORT INFORMATION
  Report Type: Spontaneous
  Country: US (occurrence: None)
  Receive Date: 20130408
  Receipt Date: 20130408
  Transmission Date: 20140414
  Serious: Yes (Hospitalization)
  Sender: FDA-Public Use
  Company Number: None

PATIENT
  Age: 78 Year
  Sex: Female
  Weight: 55.5 kg

DRUGS (2)
  1. XARELTO [Suspect]
     Indication: POSTOPERATIVE CARE
     Dates: start: 20130402, end: 20130405
  2. XARELTO [Suspect]
     Indication: THROMBOSIS PROPHYLAXIS
     Dates: start: 20130402, end: 20130405

REACTIONS (4)
  - Wound secretion [None]
  - Incision site pain [None]
  - Incision site haemorrhage [None]
  - Swelling [None]
